FAERS Safety Report 14679789 (Version 1)
Quarter: 2018Q1

REPORT INFORMATION
  Report Type: Report from Study
  Country: IT (occurrence: IT)
  Receive Date: 20180326
  Receipt Date: 20180326
  Transmission Date: 20180509
  Serious: Yes (Other)
  Sender: FDA-Public Use
  Company Number: IT-TEVA-2018-IT-873166

PATIENT

DRUGS (5)
  1. CYTARABINE. [Suspect]
     Active Substance: CYTARABINE
     Indication: MANTLE CELL LYMPHOMA
     Dosage: 500 MG/M2 CYCLIC ON DAYS 24 EVERY 4 WEEKS FOR UP TO SIX CYCLES
     Route: 042
  2. BENDAMUSTINE HYDROCHLORIDE. [Suspect]
     Active Substance: BENDAMUSTINE HYDROCHLORIDE
     Indication: MANTLE CELL LYMPHOMA
     Dosage: 70 MG/M2, (ON DAYS 2 AND 3, EVERY 4 WEEKS FOR UP TO SIX CYCLES)
     Route: 042
  3. RITUXIMAB. [Suspect]
     Active Substance: RITUXIMAB
     Indication: MANTLE CELL LYMPHOMA
     Dosage: 375 MG/M2 CYCLIC ON DAY 1, EVERY 4 WEEKS FOR UP TO SIX CYCLES
     Route: 042
  4. GRANULOCYTE COLONY STIMULATING FACTOR [Concomitant]
     Active Substance: GRANULOCYTE COLONY-STIMULATING FACTOR NOS
     Indication: PROPHYLAXIS
     Route: 065
  5. ALLOPURINOL. [Concomitant]
     Active Substance: ALLOPURINOL
     Indication: PROPHYLAXIS
     Dosage: 100-300 MG, ONCE DAILY
     Route: 065

REACTIONS (2)
  - Myocardial infarction [Unknown]
  - Cerebral ischaemia [Unknown]
